FAERS Safety Report 9479649 (Version 2)
Quarter: 2013Q3

REPORT INFORMATION
  Report Type: Spontaneous
  Country: BR (occurrence: BR)
  Receive Date: 20130827
  Receipt Date: 20130827
  Transmission Date: 20140515
  Serious: Yes (Other)
  Sender: FDA-Public Use
  Company Number: PHHY2013BR076080

PATIENT
  Sex: Female
  Weight: 68 kg

DRUGS (3)
  1. RITALINA [Suspect]
     Dosage: 1 DF, UNK
     Route: 048
  2. RITALINA [Suspect]
     Dosage: 1 DF, UNK
     Route: 048
  3. RITALIN LA [Suspect]
     Indication: DISTURBANCE IN ATTENTION
     Dosage: 2 DF, (1 OR 2 CAPSULES PER DAY)
     Route: 048
     Dates: start: 201212, end: 201305

REACTIONS (3)
  - Chest discomfort [Not Recovered/Not Resolved]
  - Palpitations [Recovered/Resolved]
  - Headache [Not Recovered/Not Resolved]
